FAERS Safety Report 7772805-0 (Version None)
Quarter: 2011Q3

REPORT INFORMATION
  Report Type: 
  Country: None (occurrence: None)
  Receive Date: 20110922
  Receipt Date: 20100823
  Transmission Date: 20111222
  Serious: Yes (Other)
  Sender: FDA-Public Use
  Company Number: US-ASTRAZENECA-2006UW07915

PATIENT
  Age: 25 Year
  Sex: Female
  Weight: 74.8 kg

DRUGS (17)
  1. HALDOL [Concomitant]
     Dates: start: 20060101
  2. SYNTHROID [Concomitant]
     Indication: HYPOTHYROIDISM
     Dosage: 0.025 - 50 MCG
     Dates: start: 20030428
  3. DEPAKOTE [Concomitant]
     Dosage: 250 - 750 MG
     Dates: start: 20010316
  4. PRILOSEC [Concomitant]
     Route: 048
     Dates: start: 19980707
  5. SEROQUEL [Suspect]
     Dosage: 10 - 200 MG
     Route: 048
     Dates: start: 20030323
  6. SEROQUEL [Suspect]
     Dosage: 25-300 MG
     Route: 048
     Dates: start: 20000101, end: 20060101
  7. PREVACID [Concomitant]
     Dates: start: 20010316
  8. RISPERDAL [Concomitant]
     Dosage: 0.25 - 0.5 MG
     Dates: start: 20050719
  9. LITHIUM [Concomitant]
     Dates: start: 20030419
  10. SEROQUEL [Suspect]
     Indication: MANIA
     Dosage: 25 MG TO 300 MG
     Route: 048
     Dates: start: 20000101, end: 20050101
  11. SEROQUEL [Suspect]
     Dosage: 10 - 200 MG
     Route: 048
     Dates: start: 20030323
  12. PREDNISONE [Concomitant]
     Dosage: 60 - 5 MG TAPERING DOSE
     Dates: start: 19971110
  13. AMBIEN [Concomitant]
     Indication: SLEEP DISORDER
     Dosage: 5 - 10 MG
     Dates: start: 20050702
  14. SEROQUEL [Suspect]
     Indication: BIPOLAR DISORDER
     Dosage: 25 MG TO 300 MG
     Route: 048
     Dates: start: 20000101, end: 20050101
  15. SEROQUEL [Suspect]
     Dosage: 25-300 MG
     Route: 048
     Dates: start: 20000101, end: 20060101
  16. ANAKRANIL [Concomitant]
     Dates: start: 20100101
  17. ABILIFY [Concomitant]
     Dates: start: 20090101

REACTIONS (10)
  - OBESITY [None]
  - HYPERCHOLESTEROLAEMIA [None]
  - TYPE 2 DIABETES MELLITUS [None]
  - CROHN'S DISEASE [None]
  - HYPERLIPIDAEMIA [None]
  - BLOOD TRIGLYCERIDES INCREASED [None]
  - DIABETES MELLITUS [None]
  - BLOOD CHOLESTEROL INCREASED [None]
  - PANCREATITIS [None]
  - HYPERGLYCAEMIA [None]
